FAERS Safety Report 16849485 (Version 1)
Quarter: 2019Q3

REPORT INFORMATION
  Report Type: Spontaneous
  Country: US (occurrence: US)
  Receive Date: 20190802
  Receipt Date: 20190802
  Transmission Date: 20191005
  Serious: Yes (Disabling, Other)
  Sender: FDA-Public Use
  Company Number: None

PATIENT
  Sex: Female
  Weight: 63.5 kg

DRUGS (1)
  1. LOSARTAN POTASSIUM 50MG TAB [Suspect]
     Active Substance: LOSARTAN POTASSIUM
     Indication: BLOOD PRESSURE MEASUREMENT
     Dosage: ?          QUANTITY:1 DF DOSAGE FORM;?
     Route: 048

REACTIONS (18)
  - Adverse event [None]
  - Bronchitis [None]
  - Alopecia [None]
  - Urinary incontinence [None]
  - Product quality issue [None]
  - Balance disorder [None]
  - Atrial fibrillation [None]
  - Product quality control issue [None]
  - Foot fracture [None]
  - Amnesia [None]
  - Diarrhoea [None]
  - Pain of skin [None]
  - Visual impairment [None]
  - Pain [None]
  - Aphasia [None]
  - Mental impairment [None]
  - Fall [None]
  - Skin exfoliation [None]
